FAERS Safety Report 19716552 (Version 3)
Quarter: 2021Q4

REPORT INFORMATION
  Report Type: Report from Study
  Country: CA (occurrence: CA)
  Receive Date: 20210818
  Receipt Date: 20211020
  Transmission Date: 20220303
  Serious: Yes (Other)
  Sender: FDA-Public Use
  Company Number: NVSC2021CA178214

PATIENT
  Age: 49 Year
  Sex: Female

DRUGS (4)
  1. LEFLUNOMIDE [Suspect]
     Active Substance: LEFLUNOMIDE
     Indication: Product used for unknown indication
     Dosage: 1 DF, QD
     Route: 048
     Dates: start: 202007, end: 202104
  2. METHOTREXATE [Suspect]
     Active Substance: METHOTREXATE
     Indication: Product used for unknown indication
     Dosage: UNK
     Route: 058
     Dates: start: 201903, end: 201907
  3. SULFASALAZINE [Concomitant]
     Active Substance: SULFASALAZINE
     Indication: Product used for unknown indication
     Dosage: 2 DF, BID
     Route: 048
     Dates: start: 202011, end: 202103
  4. OTEZLA [Concomitant]
     Active Substance: APREMILAST
     Indication: Product used for unknown indication
     Dosage: UNK
     Route: 048
     Dates: start: 201908, end: 202007

REACTIONS (12)
  - Psoriatic arthropathy [Unknown]
  - Intestinal perforation [Unknown]
  - Abdominal discomfort [Unknown]
  - Swelling [Unknown]
  - Vomiting [Unknown]
  - Gait disturbance [Unknown]
  - Musculoskeletal stiffness [Unknown]
  - Arthritis [Unknown]
  - General physical health deterioration [Unknown]
  - Mental disorder [Unknown]
  - Feeling abnormal [Unknown]
  - Joint dislocation [Unknown]

NARRATIVE: CASE EVENT DATE: 20201101
